FAERS Safety Report 8815070 (Version 2)
Quarter: 2012Q4

REPORT INFORMATION
  Report Type: 
  Country: US (occurrence: US)
  Receive Date: 20120928
  Receipt Date: 20121022
  Transmission Date: 20130627
  Serious: Yes (Death)
  Sender: FDA-Public Use
  Company Number: US-ROCHE-1129518

PATIENT
  Sex: Male

DRUGS (2)
  1. HERCEPTIN [Suspect]
     Indication: TESTIS CANCER
     Route: 065
     Dates: start: 20000901
  2. HERCEPTIN [Suspect]
     Route: 065
     Dates: start: 20000907

REACTIONS (1)
  - Neoplasm [Fatal]
